FAERS Safety Report 20538981 (Version 1)
Quarter: 2022Q1

REPORT INFORMATION
  Report Type: Report from Study
  Country: BR (occurrence: BR)
  Receive Date: 20220302
  Receipt Date: 20220302
  Transmission Date: 20220424
  Serious: Yes (Hospitalization)
  Sender: FDA-Public Use
  Company Number: BR-BIOGEN-2020BI00864010

PATIENT
  Age: 23 Year
  Sex: Male

DRUGS (5)
  1. TYSABRI [Suspect]
     Active Substance: NATALIZUMAB
     Indication: Multiple sclerosis
     Route: 042
     Dates: start: 20160501, end: 20220130
  2. TYSABRI [Suspect]
     Active Substance: NATALIZUMAB
     Route: 042
     Dates: start: 201605, end: 202007
  3. TYSABRI [Suspect]
     Active Substance: NATALIZUMAB
     Route: 042
     Dates: start: 202007
  4. TYSABRI [Suspect]
     Active Substance: NATALIZUMAB
     Route: 042
     Dates: start: 201605, end: 20220130
  5. AMANTADINE [Concomitant]
     Active Substance: AMANTADINE
     Indication: Fatigue
     Route: 065

REACTIONS (6)
  - Seizure [Recovered/Resolved]
  - Fall [Recovered/Resolved]
  - Multiple sclerosis relapse [Recovered/Resolved]
  - Drug ineffective [Recovered/Resolved]
  - Prescribed underdose [Recovered/Resolved]
  - Dizziness [Recovered/Resolved]

NARRATIVE: CASE EVENT DATE: 20160501
